FAERS Safety Report 19153330 (Version 3)
Quarter: 2021Q2

REPORT INFORMATION
  Report Type: Report from Study
  Country: FR (occurrence: FR)
  Receive Date: 20210419
  Receipt Date: 20210521
  Transmission Date: 20210717
  Serious: Yes (Hospitalization)
  Sender: FDA-Public Use
  Company Number: FR-CELGENEUS-FRA-20210402510

PATIENT
  Age: 72 Year
  Sex: Male
  Weight: 70.2 kg

DRUGS (9)
  1. AG?221 [Suspect]
     Active Substance: ENASIDENIB
     Indication: MYELODYSPLASTIC SYNDROME
     Route: 048
     Dates: start: 20210218, end: 20210407
  2. VALACICLOVIR [Concomitant]
     Active Substance: VALACYCLOVIR HYDROCHLORIDE
     Indication: ANAL ABSCESS
     Route: 048
     Dates: start: 20210222
  3. TRAMADOL. [Concomitant]
     Active Substance: TRAMADOL
     Route: 048
     Dates: start: 20210411, end: 20210416
  4. SOTALOL. [Concomitant]
     Active Substance: SOTALOL
     Indication: ANAL ABSCESS
     Route: 048
  5. TRAMADOL. [Concomitant]
     Active Substance: TRAMADOL
     Indication: ARTHRALGIA
     Route: 048
     Dates: start: 20210406, end: 20210411
  6. PRIMPERAN [Concomitant]
     Active Substance: METOCLOPRAMIDE HYDROCHLORIDE
     Indication: NAUSEA
     Route: 048
     Dates: start: 20210303, end: 202103
  7. SOTALOL. [Concomitant]
     Active Substance: SOTALOL
     Indication: VENTRICULAR EXTRASYSTOLES
     Route: 048
  8. TRAMADOL. [Concomitant]
     Active Substance: TRAMADOL
     Indication: ANAL ABSCESS
     Route: 048
     Dates: start: 20210214, end: 20210318
  9. AG?221 [Suspect]
     Active Substance: ENASIDENIB
     Route: 048
     Dates: start: 20210412

REACTIONS (1)
  - Anal abscess [Recovered/Resolved]

NARRATIVE: CASE EVENT DATE: 20210406
